FAERS Safety Report 16595408 (Version 5)
Quarter: 2019Q4

REPORT INFORMATION
  Report Type: Spontaneous
  Country: PL (occurrence: PL)
  Receive Date: 20190719
  Receipt Date: 20191126
  Transmission Date: 20200122
  Serious: Yes (Death, Life-Threatening, Hospitalization, Other)
  Sender: FDA-Public Use
  Company Number: PL-B.I. PHARMACEUTICALS,INC./RIDGEFIELD-2019-BI-027697

PATIENT
  Age: 90 Year
  Sex: Female
  Weight: 50 kg

DRUGS (1)
  1. PRADAXA [Suspect]
     Active Substance: DABIGATRAN ETEXILATE MESYLATE
     Indication: CEREBROVASCULAR ACCIDENT PROPHYLAXIS
     Route: 065

REACTIONS (8)
  - Sepsis [Fatal]
  - Cardiac failure [Fatal]
  - Gastrointestinal vascular malformation haemorrhagic [Unknown]
  - Renal failure [Fatal]
  - Large intestinal haemorrhage [Recovered/Resolved]
  - Epistaxis [Unknown]
  - Haemoptysis [Unknown]
  - General physical health deterioration [Fatal]
